FAERS Safety Report 8904431 (Version 1)
Quarter: 2012Q4

REPORT INFORMATION
  Report Type: 
  Country: US (occurrence: US)
  Receive Date: 20121113
  Receipt Date: 20121113
  Transmission Date: 20130627
  Serious: Yes (Death, Hospitalization)
  Sender: FDA-Public Use
  Company Number: US-ASTELLAS-2012US011011

PATIENT
  Age: 54 Year
  Sex: Male

DRUGS (15)
  1. PROGRAF [Suspect]
     Indication: RENAL TRANSPLANT
     Dosage: 3.5 mg, bid
     Route: 048
     Dates: start: 20100916, end: 20111016
  2. PROGRAF [Suspect]
     Dosage: 2 mg, bid
     Route: 048
     Dates: start: 20111024, end: 20111206
  3. CALCITRIOL [Concomitant]
     Indication: VITAMIN SUPPLEMENTATION
     Dosage: 2.5 mg, UID/QD
     Route: 048
  4. ARANESP [Concomitant]
     Indication: ANAEMIA
     Dosage: 100 ug, Q2W
     Route: 065
  5. ZETIA [Concomitant]
     Indication: BLOOD CHOLESTEROL
     Dosage: 10 mg, UID/QD
     Route: 048
  6. FLUOXETINE [Concomitant]
     Indication: DEPRESSION
     Dosage: 20 mg, UID/QD
     Route: 048
  7. FUROSEMIDE [Concomitant]
     Indication: SWELLING
     Dosage: 40 mg, UID/QD
     Route: 048
  8. FUROSEMIDE [Concomitant]
     Indication: FLUID RETENTION
  9. GABAPENTIN [Concomitant]
     Indication: NEUROPATHY PERIPHERAL
     Dosage: 300 mg, tid
     Route: 048
  10. GLIPIZIDE [Concomitant]
     Indication: DIABETES MELLITUS
     Dosage: 5 mg, UID/QD
     Route: 048
  11. LEVOTHYROXINE [Concomitant]
     Indication: HYPOTHYROIDISM
     Dosage: 75 ug, UID/QD
     Route: 048
  12. METOPROLOL [Concomitant]
     Indication: HYPERTENSION
     Dosage: 50 mg, bid
     Route: 048
  13. CELLCEPT                           /01275102/ [Concomitant]
     Indication: RENAL TRANSPLANT
     Dosage: 1000 mg, UID/QD
     Route: 048
  14. OMEGA-3 FATTY ACIDS [Concomitant]
     Indication: MEDICAL DIET
     Dosage: 1000 mg, bid
     Route: 048
  15. PREDNISONE [Concomitant]
     Indication: STEROID THERAPY
     Dosage: 5 mg, bid
     Route: 048

REACTIONS (1)
  - Cardiac arrest [Fatal]
